FAERS Safety Report 8461910-1 (Version None)
Quarter: 2012Q2

REPORT INFORMATION
  Report Type: 
  Country: None (occurrence: None)
  Receive Date: 20120323
  Receipt Date: 20110923
  Transmission Date: 20120825
  Serious: Yes (Hospitalization)
  Sender: FDA-Public Use
  Company Number: 163-21880-11093168

PATIENT
  Age: 52 Year
  Sex: Male
  Weight: 81.6475 kg

DRUGS (13)
  1. HYDROCODONE BITARTRATE [Concomitant]
  2. PREDNISONE TAB [Concomitant]
  3. ANTIBIOTICS (ANTIBIOTICS) [Concomitant]
  4. NORVASC [Concomitant]
  5. LENALIDOMIDE [Suspect]
     Indication: MULTIPLE MYELOMA
     Dosage: 25 MG, 21/7, PO
     Route: 048
     Dates: start: 20110819
  6. BENADRYL [Concomitant]
  7. ATENOLOL [Concomitant]
  8. IBUPROFEN [Concomitant]
  9. COMPAZINE [Concomitant]
  10. LASIX [Concomitant]
  11. VITAMIN D [Concomitant]
  12. CYCLOPHOSPHAMIDE [Concomitant]
  13. WARFARIN SODIUM [Concomitant]

REACTIONS (1)
  - PNEUMONIA [None]
